FAERS Safety Report 5520710-2 (Version None)
Quarter: 2007Q4

REPORT INFORMATION
  Report Type: 
  Country: None (occurrence: None)
  Receive Date: 20071119
  Receipt Date: 20071106
  Transmission Date: 20080405
  Serious: Yes (Death, Hospitalization, Other)
  Sender: FDA-Public Use
  Company Number: US-PFIZER INC-2007094455

PATIENT
  Sex: Male
  Weight: 71.7 kg

DRUGS (6)
  1. SUTENT [Suspect]
     Indication: BLADDER CANCER
     Dosage: DAILY DOSE:50MG-FREQ:DAILY
     Route: 048
     Dates: start: 20071001, end: 20071029
  2. BACTRIM DS [Concomitant]
     Indication: HAEMATURIA
     Route: 048
  3. ZOFRAN [Concomitant]
     Route: 048
  4. COMPAZINE [Concomitant]
     Route: 048
  5. NEXIUM [Concomitant]
     Route: 048
  6. BACLOFEN [Concomitant]
     Route: 048

REACTIONS (7)
  - DEATH [None]
  - DEHYDRATION [None]
  - JAUNDICE [None]
  - MENTAL STATUS CHANGES [None]
  - NAUSEA [None]
  - URINARY TRACT INFECTION [None]
  - VOMITING [None]
